FAERS Safety Report 9286730 (Version 1)
Quarter: 2013Q2

REPORT INFORMATION
  Report Type: Spontaneous
  Country: GB (occurrence: GB)
  Receive Date: 20130513
  Receipt Date: 20130513
  Transmission Date: 20140414
  Serious: Yes (Hospitalization)
  Sender: FDA-Public Use
  Company Number: GB-PFIZER INC-2013141988

PATIENT
  Age: 52 Year
  Sex: Female
  Weight: 69.85 kg

DRUGS (3)
  1. ONDANSETRON HCL [Suspect]
     Indication: PROPHYLAXIS
     Dosage: 4 MG, UNK
     Route: 042
     Dates: start: 20130426, end: 20130426
  2. PROPOFOL-LIPURO [Suspect]
     Indication: GENERAL ANAESTHESIA
     Dosage: 200 MG, UNK
     Route: 042
     Dates: start: 20130426, end: 20130426
  3. ISOFLURANE [Suspect]
     Dosage: UNK

REACTIONS (5)
  - Mutism [Not Recovered/Not Resolved]
  - Slow response to stimuli [Recovering/Resolving]
  - Aphasia [Unknown]
  - Hyperventilation [Unknown]
  - Tearfulness [Recovering/Resolving]
